FAERS Safety Report 25863698 (Version 1)
Quarter: 2025Q3

REPORT INFORMATION
  Report Type: Spontaneous
  Country: US (occurrence: None)
  Receive Date: 20250929
  Receipt Date: 20250929
  Transmission Date: 20251020
  Serious: Yes (Hospitalization)
  Sender: FDA-CTU
  Company Number: None

PATIENT
  Age: 28 Year
  Sex: Female
  Weight: 77.4 kg

DRUGS (1)
  1. BOTOX [Suspect]
     Active Substance: ONABOTULINUMTOXINA
     Dates: start: 20250924, end: 20250924

REACTIONS (4)
  - Dizziness [None]
  - Asthenia [None]
  - Blood pressure decreased [None]
  - Bladder pain [None]

NARRATIVE: CASE EVENT DATE: 20250924
